FAERS Safety Report 7297783-2 (Version None)
Quarter: 2011Q1

REPORT INFORMATION
  Report Type: 
  Country: None (occurrence: None)
  Receive Date: 20110214
  Receipt Date: 20110214
  Transmission Date: 20110831
  Serious: No
  Sender: FDA-Public Use
  Company Number: None

PATIENT
  Age: 60 Year
  Sex: Female
  Weight: 49.8957 kg

DRUGS (1)
  1. CHLOROQUINE PHOSPHATE [Suspect]
     Indication: MALARIA PROPHYLAXIS
     Dosage: 500 MG WEEKLY PO
     Route: 048
     Dates: start: 20110102, end: 20110109

REACTIONS (11)
  - LACRIMATION INCREASED [None]
  - PHOTOPHOBIA [None]
  - RESTLESSNESS [None]
  - FEELING ABNORMAL [None]
  - DIZZINESS [None]
  - VISUAL IMPAIRMENT [None]
  - VISION BLURRED [None]
  - NERVOUSNESS [None]
  - EYE PAIN [None]
  - DRY EYE [None]
  - ABNORMAL DREAMS [None]
